FAERS Safety Report 15012777 (Version 2)
Quarter: 2018Q2

REPORT INFORMATION
  Report Type: Spontaneous
  Country: DE (occurrence: DE)
  Receive Date: 20180614
  Receipt Date: 20180619
  Transmission Date: 20180711
  Serious: Yes (Other)
  Sender: FDA-Public Use
  Company Number: DE-TEVA-2018-DE-907663

PATIENT
  Age: 28 Year
  Sex: Female
  Weight: 66 kg

DRUGS (1)
  1. COPAXONE [Suspect]
     Active Substance: GLATIRAMER ACETATE
     Indication: MULTIPLE SCLEROSIS RELAPSE
     Dosage: 40 MG 3X/WOCHE
     Route: 058
     Dates: start: 20170315, end: 20180131

REACTIONS (5)
  - Salivary gland calculus [Not Recovered/Not Resolved]
  - Intestinal haemorrhage [Recovered/Resolved]
  - Anogenital warts [Recovered/Resolved]
  - Intestinal haemorrhage [Recovered/Resolved]
  - Anal fissure [Recovered/Resolved]

NARRATIVE: CASE EVENT DATE: 201704
